FAERS Safety Report 8721403 (Version 5)
Quarter: 2012Q4

REPORT INFORMATION
  Report Type: Report from Study
  Country: GB (occurrence: GB)
  Receive Date: 20120813
  Receipt Date: 20120928
  Transmission Date: 20130627
  Serious: Yes (Other)
  Sender: FDA-Public Use
  Company Number: GB-CELGENEUS-167-21880-12080393

PATIENT
  Age: 76 Year
  Sex: Male
  Weight: 77.6 kg

DRUGS (4)
  1. REVLIMID [Suspect]
     Indication: MULTIPLE MYELOMA
     Route: 048
     Dates: start: 20120725, end: 20120731
  2. REVLIMID [Suspect]
     Route: 048
     Dates: start: 20120822
  3. CYCLOPHOSPHAMIDE [Suspect]
     Indication: MULTIPLE MYELOMA
     Route: 048
     Dates: start: 20120725, end: 20120725
  4. DEXAMETHASONE [Suspect]
     Indication: MULTIPLE MYELOMA
     Route: 048
     Dates: start: 20120725, end: 20120728

REACTIONS (1)
  - Drug eruption [Not Recovered/Not Resolved]
